FAERS Safety Report 10378243 (Version 2)
Quarter: 2014Q3

REPORT INFORMATION
  Report Type: Spontaneous
  Country: JP (occurrence: JP)
  Receive Date: 20140812
  Receipt Date: 20140904
  Transmission Date: 20150326
  Serious: Yes (Life-Threatening)
  Sender: FDA-Public Use
  Company Number: JP-SA-2014SA105829

PATIENT
  Age: 77 Year
  Sex: Male
  Weight: 61 kg

DRUGS (14)
  1. URSO [Concomitant]
     Active Substance: URSODIOL
  2. 5-FU [Suspect]
     Active Substance: FLUOROURACIL
     Indication: COLON CANCER
     Dosage: ONCE IN 2DAYS
     Route: 041
     Dates: start: 20140514, end: 20140514
  3. DEXART [Concomitant]
     Active Substance: DEXAMETHASONE SODIUM PHOSPHATE
     Dates: start: 20140514, end: 20140514
  4. DIPHENHYDRAMINE [Concomitant]
     Active Substance: DIPHENHYDRAMINE
     Dates: start: 20140514, end: 20140514
  5. ZANTAC [Concomitant]
     Active Substance: RANITIDINE HYDROCHLORIDE
     Dates: start: 20140514, end: 20140514
  6. UROCALUN [Concomitant]
     Active Substance: QUERCUS SALICINA STEM
  7. CALCIUM LEVOFOLINATE [Concomitant]
     Active Substance: LEVOLEUCOVORIN CALCIUM
     Dates: start: 20140514, end: 20140514
  8. SEROTONE [Concomitant]
     Active Substance: AZASETRON HYDROCHLORIDE
     Dates: start: 20140514, end: 20140514
  9. COSPANON [Concomitant]
     Active Substance: FLOPROPIONE
  10. ELPLAT [Suspect]
     Active Substance: OXALIPLATIN
     Indication: COLON CANCER
     Dosage: FORM:I.V. INFUSION SOLUTION INJECTION
     Route: 041
     Dates: start: 20140514, end: 20140514
  11. 5-FU [Suspect]
     Active Substance: FLUOROURACIL
     Indication: COLON CANCER
     Route: 040
     Dates: start: 20140514, end: 20140514
  12. NORVASC [Concomitant]
     Active Substance: AMLODIPINE BESYLATE
  13. FAMOTIDINE. [Concomitant]
     Active Substance: FAMOTIDINE
  14. FLOMOX [Concomitant]
     Active Substance: CEFCAPENE PIVOXIL HYDROCHLORIDE HYDRATE

REACTIONS (2)
  - Electrocardiogram QT prolonged [Recovering/Resolving]
  - Ventricular fibrillation [Recovering/Resolving]

NARRATIVE: CASE EVENT DATE: 20140516
